FAERS Safety Report 10253160 (Version 4)
Quarter: 2014Q3

REPORT INFORMATION
  Report Type: Report from Study
  Country: KE (occurrence: KE)
  Receive Date: 20140623
  Receipt Date: 20140723
  Transmission Date: 20150326
  Serious: Yes (Hospitalization)
  Sender: FDA-Public Use
  Company Number: KE-VIIV HEALTHCARE LIMITED-B1005923A

PATIENT
  Age: 7 Year
  Sex: Male
  Weight: 17 kg

DRUGS (6)
  1. ABACAVIR [Suspect]
     Active Substance: ABACAVIR
     Indication: HIV INFECTION
     Dates: start: 20130930
  2. LAMIVUDINE-HIV [Suspect]
     Active Substance: LAMIVUDINE
     Indication: HIV INFECTION
     Dates: start: 20130930
  3. NEVIRAPINE. [Suspect]
     Active Substance: NEVIRAPINE
     Dates: start: 20130930
  4. ISONIAZID. [Suspect]
     Active Substance: ISONIAZID
     Dates: start: 20131219, end: 20140609
  5. PIRIDOXINE [Concomitant]
     Dates: start: 20131218, end: 20140609
  6. SEPTRIN [Suspect]
     Active Substance: SULFAMETHOXAZOLE\TRIMETHOPRIM
     Dates: start: 20130822

REACTIONS (6)
  - Anaemia [Recovered/Resolved]
  - Gastroenteritis [Not Recovered/Not Resolved]
  - Malnutrition [Recovered/Resolved]
  - Haemorrhoids [Recovered/Resolved]
  - Neutropenia [Recovered/Resolved]
  - Pneumonia [Recovered/Resolved]

NARRATIVE: CASE EVENT DATE: 20140602
